FAERS Safety Report 5657111-2 (Version None)
Quarter: 2008Q1

REPORT INFORMATION
  Report Type: 
  Country: None (occurrence: None)
  Receive Date: 20080310
  Receipt Date: 20080306
  Transmission Date: 20080703
  Serious: Yes (Hospitalization)
  Sender: FDA-Public Use
  Company Number: FI-JNJFOC-20080301186

PATIENT
  Age: 60 Year
  Sex: Female

DRUGS (9)
  1. RISPERDAL CONSTA [Suspect]
     Indication: SCHIZOPHRENIA
     Route: 030
  2. PRIMASPAN [Concomitant]
     Route: 048
  3. SIMVASTATIN [Concomitant]
     Route: 048
  4. ZYPREXA [Concomitant]
     Route: 048
  5. ZYPREXA [Concomitant]
     Route: 048
  6. METFOREM [Concomitant]
     Route: 048
  7. LEVOZIN [Concomitant]
     Route: 048
  8. CITALOPRAM HYDROBROMIDE [Concomitant]
     Route: 048
  9. RINEXIN [Concomitant]
     Route: 048

REACTIONS (2)
  - SCHIZOPHRENIA [None]
  - THROMBOCYTOPENIA [None]
